FAERS Safety Report 9565268 (Version 1)
Quarter: 2013Q3

REPORT INFORMATION
  Report Type: Spontaneous
  Country: JP (occurrence: JP)
  Receive Date: 20130930
  Receipt Date: 20130930
  Transmission Date: 20140515
  Serious: Yes (Life-Threatening, Hospitalization, Other)
  Sender: FDA-Public Use
  Company Number: PHHY2013JP108104

PATIENT
  Sex: Female

DRUGS (3)
  1. DIOVAN [Suspect]
     Dosage: UNK
     Route: 048
  2. CO-DIOVAN [Suspect]
     Dosage: 1 DF, BID (EACH TABLET IN THE MORNING AND THE EVENING)
     Route: 048
  3. EXFORGE [Suspect]
     Dosage: 1 DF, BID (EACH TABLET IN THE MORNING AND THE EVENING)
     Route: 048

REACTIONS (4)
  - Heat illness [Unknown]
  - Apparent death [Unknown]
  - Neoplasm malignant [Unknown]
  - Seasonal affective disorder [Unknown]
